FAERS Safety Report 7934681-2 (Version None)
Quarter: 2011Q4

REPORT INFORMATION
  Report Type: 
  Country: None (occurrence: None)
  Receive Date: 20111116
  Receipt Date: 20111110
  Transmission Date: 20120403
  Serious: Yes (Other)
  Sender: FDA-Public Use
  Company Number: A0952620A

PATIENT
  Age: 55 Year
  Sex: Female

DRUGS (1)
  1. METHYLCELLULOSE (FORMULATION UNKNOWN) SUGAR GREE ORANGE (METHYLCELLULO [Suspect]

REACTIONS (4)
  - DEHYDRATION [None]
  - ANGIOEDEMA [None]
  - PERFUME SENSITIVITY [None]
  - HYPERSENSITIVITY [None]
